FAERS Safety Report 7580059-3 (Version None)
Quarter: 2011Q2

REPORT INFORMATION
  Report Type: 
  Country: None (occurrence: None)
  Receive Date: 20110629
  Receipt Date: 20110620
  Transmission Date: 20111010
  Serious: Yes (Other)
  Sender: FDA-Public Use
  Company Number: GB-SANOFI-AVENTIS-2011SA039072

PATIENT
  Age: 77 Year
  Sex: Female

DRUGS (3)
  1. WARFARIN SODIUM [Concomitant]
  2. ALL OTHER THERAPEUTIC PRODUCTS [Concomitant]
  3. DRONEDARONE HCL [Suspect]
     Route: 048
     Dates: start: 20110404, end: 20110608

REACTIONS (8)
  - DIARRHOEA [None]
  - NERVOUSNESS [None]
  - DIZZINESS [None]
  - MUSCLE SPASMS [None]
  - FEELING JITTERY [None]
  - HYPOAESTHESIA ORAL [None]
  - LETHARGY [None]
  - DYSPNOEA [None]
